FAERS Safety Report 19698457 (Version 1)
Quarter: 2021Q3

REPORT INFORMATION
  Report Type: Spontaneous
  Country: US (occurrence: US)
  Receive Date: 20210813
  Receipt Date: 20210813
  Transmission Date: 20211014
  Serious: Yes (Death)
  Sender: FDA-Public Use
  Company Number: None

PATIENT
  Age: 74 Year
  Sex: Male

DRUGS (13)
  1. HYOSCYAMINE. [Concomitant]
     Active Substance: HYOSCYAMINE
  2. PROMACTA [Suspect]
     Active Substance: ELTROMBOPAG OLAMINE
     Indication: ANAEMIA
     Route: 048
     Dates: start: 20180113
  3. POT CHLORIDE ER [Concomitant]
  4. TAMSULOSIN [Concomitant]
     Active Substance: TAMSULOSIN
  5. MORPHINE SUL [Concomitant]
     Active Substance: MORPHINE SULFATE
  6. LORAZEPAM. [Concomitant]
     Active Substance: LORAZEPAM
  7. RANOLAZINE. [Concomitant]
     Active Substance: RANOLAZINE
  8. LISINOPRIL. [Concomitant]
     Active Substance: LISINOPRIL
  9. DIGOXIN. [Concomitant]
     Active Substance: DIGOXIN
  10. TRAMADOL HCL [Concomitant]
     Active Substance: TRAMADOL HYDROCHLORIDE
  11. POT CL MICRO ER [Concomitant]
  12. FUROSEMIDE. [Concomitant]
     Active Substance: FUROSEMIDE
  13. METOPROL SUC ER [Concomitant]
     Active Substance: METOPROLOL SUCCINATE

REACTIONS (1)
  - Death [None]
